FAERS Safety Report 21909717 (Version 2)
Quarter: 2023Q1

REPORT INFORMATION
  Report Type: Spontaneous
  Country: CO (occurrence: CO)
  Receive Date: 20230125
  Receipt Date: 20230202
  Transmission Date: 20230418
  Serious: No
  Sender: FDA-Public Use
  Company Number: CO-AMGEN-COLSP2023005674

PATIENT
  Sex: Female
  Weight: 65 kg

DRUGS (13)
  1. MVASI [Suspect]
     Active Substance: BEVACIZUMAB-AWWB
     Indication: Glioma
     Dosage: 1000 MILLIGRAM, Q3WK
     Route: 040
     Dates: start: 202207
  2. MVASI [Suspect]
     Active Substance: BEVACIZUMAB-AWWB
     Dosage: 1000 MILLIGRAM, Q3WK
     Route: 040
  3. MVASI [Suspect]
     Active Substance: BEVACIZUMAB-AWWB
     Dosage: 1000 MILLIGRAM, Q3WK
     Route: 040
     Dates: start: 20221102
  4. TEMOZOLOMIDE [Concomitant]
     Active Substance: TEMOZOLOMIDE
     Indication: Glioma
     Dosage: UNK
     Dates: start: 202207
  5. TEMOZOLOMIDE [Concomitant]
     Active Substance: TEMOZOLOMIDE
     Dosage: 80 MILLIGRAM, Q3WK
     Route: 048
     Dates: start: 20221102
  6. DEXAMETHASONE [Concomitant]
     Active Substance: DEXAMETHASONE
     Indication: Glioma
     Dosage: 4 MILLIGRAM, Q3WK
     Route: 040
     Dates: start: 20221102
  7. ONDANSETRON [Concomitant]
     Active Substance: ONDANSETRON
     Indication: Glioma
     Dosage: 8 MILLIGRAM, Q8H
     Route: 048
     Dates: start: 20221102
  8. LEVETIRACETAM [Concomitant]
     Active Substance: LEVETIRACETAM
     Indication: Glioma
     Dosage: 1000 MILLIGRAM, Q12H
     Route: 048
     Dates: start: 20221102
  9. LACOSAMIDE [Concomitant]
     Active Substance: LACOSAMIDE
     Indication: Glioma
     Dosage: 100 MILLIGRAM, Q12H
     Route: 048
     Dates: start: 20221102
  10. MELATONIN [Concomitant]
     Active Substance: MELATONIN
     Indication: Glioma
     Dosage: 9 MILLIGRAM, QD
     Route: 048
     Dates: start: 20221102
  11. SERTRALINE [Concomitant]
     Active Substance: SERTRALINE HYDROCHLORIDE
     Indication: Glioma
     Dosage: 50 MILLIGRAM, QD
     Route: 048
     Dates: start: 20221102
  12. ACETAMINOPHEN [Concomitant]
     Active Substance: ACETAMINOPHEN
  13. HYDROCODONE [Concomitant]
     Active Substance: HYDROCODONE

REACTIONS (1)
  - Off label use [Not Recovered/Not Resolved]
